FAERS Safety Report 5395855-0 (Version None)
Quarter: 2007Q3

REPORT INFORMATION
  Report Type: 
  Country: None (occurrence: None)
  Receive Date: 20070718
  Receipt Date: 20070418
  Transmission Date: 20080115
  Serious: Yes (Hospitalization, Other)
  Sender: FDA-Public Use
  Company Number: 2006140440

PATIENT
  Age: 71 Year
  Sex: Female
  Weight: 68.9 kg

DRUGS (3)
  1. CELEBREX [Suspect]
     Indication: PAIN
     Dosage: (20 MG,1-2 TIMES)
     Dates: start: 19990422, end: 20011001
  2. BEXTRA [Suspect]
     Indication: PAIN
     Dosage: (2 IN 1 D)
     Dates: start: 20020828
  3. VIOXX [Suspect]
     Dates: start: 20020930

REACTIONS (1)
  - MYOCARDIAL INFARCTION [None]
